FAERS Safety Report 8121916-9 (Version None)
Quarter: 2012Q1

REPORT INFORMATION
  Report Type: 
  Country: None (occurrence: None)
  Receive Date: 20120208
  Receipt Date: 20120131
  Transmission Date: 20120608
  Serious: Yes (Other)
  Sender: FDA-Public Use
  Company Number: NO-TEVA-321428ISR

PATIENT
  Sex: Male

DRUGS (2)
  1. CISPLATIN [Suspect]
  2. ETOPOSIDE [Suspect]

REACTIONS (1)
  - PERIPHERAL SENSORY NEUROPATHY [None]
